FAERS Safety Report 6425643-5 (Version None)
Quarter: 2009Q4

REPORT INFORMATION
  Report Type: 
  Country: None (occurrence: None)
  Receive Date: 20091016
  Receipt Date: 20090827
  Transmission Date: 20100525
  Serious: Yes (Other)
  Sender: FDA-Public Use
  Company Number: 86642

PATIENT
  Age: 70 Year
  Sex: Female

DRUGS (1)
  1. LEUCOVORIN CALCIUM [Suspect]
     Indication: COLON CANCER STAGE III

REACTIONS (3)
  - DYSPHONIA [None]
  - LARYNGOSPASM [None]
  - NEUROPATHY PERIPHERAL [None]
